FAERS Safety Report 4337192-9 (Version None)
Quarter: 2004Q2

REPORT INFORMATION
  Report Type: 
  Country: None (occurrence: None)
  Receive Date: 20040408
  Receipt Date: 20040402
  Transmission Date: 20050107
  Serious: Yes (Other)
  Sender: FDA-Public Use
  Company Number: GBWYE690506APR04

PATIENT
  Age: 75 Year
  Sex: Female

DRUGS (3)
  1. MINOCIN [Suspect]
     Indication: ROSACEA
     Dosage: 100 MG 1X PER 1 DAY ORAL
     Route: 048
     Dates: start: 20040217, end: 20040229
  2. EVISTA [Concomitant]
  3. CALCICHEW-D3 (CALCIUM CARBONATE/COLECALCIFEROL) [Concomitant]

REACTIONS (2)
  - BONE PAIN [None]
  - PAIN [None]
